FAERS Safety Report 24539306 (Version 4)
Quarter: 2024Q4

REPORT INFORMATION
  Report Type: Spontaneous
  Country: IT (occurrence: IT)
  Receive Date: 20241023
  Receipt Date: 20241230
  Transmission Date: 20250114
  Serious: Yes (Other)
  Sender: PFIZER
  Company Number: IT-PFIZER INC-202400284132

PATIENT
  Age: 13 Year
  Sex: Female
  Weight: 52.3 kg

DRUGS (1)
  1. NGENLA [Suspect]
     Active Substance: SOMATROGON-GHLA
     Indication: Blood growth hormone decreased
     Dosage: 30 MG, WEEKLY
     Route: 058
     Dates: start: 202402

REACTIONS (1)
  - Lipodystrophy acquired [Recovering/Resolving]

NARRATIVE: CASE EVENT DATE: 20240901
